FAERS Safety Report 8407224-7 (Version None)
Quarter: 2012Q2

REPORT INFORMATION
  Report Type: 
  Country: None (occurrence: None)
  Receive Date: 20120529
  Receipt Date: 20000501
  Transmission Date: 20120825
  Serious: No
  Sender: FDA-Public Use
  Company Number: 02100-JPN-00-0034

PATIENT
  Age: 62 Year
  Sex: Male
  Weight: 70 kg

DRUGS (9)
  1. PRAVASTATIN [Concomitant]
  2. LORELCO [Concomitant]
  3. DILTIAZEM HYDROCHLORIDE [Concomitant]
  4. CLARITHROMYCIN [Suspect]
  5. SPARA (SAPRFLOXACIN) [Suspect]
  6. ISOSORBIDE MONONITRATE [Concomitant]
  7. DIHIDROCODEINE PHOSPHATE [Concomitant]
  8. PLETAL [Suspect]
     Indication: PERIPHERAL ARTERIAL OCCLUSIVE DISEASE
     Dosage: 100 MG, BID
     Route: 048
     Dates: start: 20000413, end: 20000413
  9. PLETAL [Suspect]
     Indication: PERIPHERAL ARTERIAL OCCLUSIVE DISEASE
     Dosage: 100 MG, BID
     Route: 048
     Dates: start: 20000427, end: 20000427

REACTIONS (3)
  - ANAPHYLACTIC SHOCK [None]
  - LOSS OF CONSCIOUSNESS [None]
  - PYREXIA [None]
